FAERS Safety Report 7871390-2 (Version None)
Quarter: 2011Q4

REPORT INFORMATION
  Report Type: 
  Country: None (occurrence: None)
  Receive Date: 20111029
  Receipt Date: 20110301
  Transmission Date: 20120403
  Serious: No
  Sender: FDA-Public Use
  Company Number: US-AMGEN-USASP2011011629

PATIENT
  Sex: Male

DRUGS (3)
  1. METHOTREXATE [Concomitant]
     Dosage: UNK
     Dates: start: 20110222
  2. ENBREL [Suspect]
     Indication: PSORIASIS
  3. ENBREL [Suspect]
     Indication: PSORIATIC ARTHROPATHY
     Dates: start: 20101201, end: 20110224

REACTIONS (3)
  - DRUG INEFFECTIVE [None]
  - ARTHRITIS [None]
  - INFLUENZA LIKE ILLNESS [None]
